FAERS Safety Report 5737071-6 (Version None)
Quarter: 2008Q2

REPORT INFORMATION
  Report Type: 
  Country: None (occurrence: None)
  Receive Date: 20080514
  Receipt Date: 20080502
  Transmission Date: 20081010
  Serious: Yes (Other)
  Sender: FDA-Public Use
  Company Number: US-BAYER-200821952NA

PATIENT
  Age: 66 Year
  Sex: Female
  Weight: 59 kg

DRUGS (1)
  1. ULTRAVIST (PHARMACY BULK) [Suspect]
     Indication: COMPUTERISED TOMOGRAM
     Dosage: TOTAL DAILY DOSE: 100 ML  UNIT DOSE: 500 ML
     Route: 042
     Dates: start: 20080502, end: 20080502

REACTIONS (4)
  - ERYTHEMA [None]
  - PRURITUS [None]
  - SWELLING [None]
  - THROAT TIGHTNESS [None]
